FAERS Safety Report 5252558-0 (Version None)
Quarter: 2007Q1

REPORT INFORMATION
  Report Type: 
  Country: None (occurrence: None)
  Receive Date: 20070301
  Receipt Date: 20070222
  Transmission Date: 20070707
  Serious: Yes (Hospitalization)
  Sender: FDA-Public Use
  Company Number: JP-JNJFOC-20061203647

PATIENT
  Sex: Male
  Weight: 65.4 kg

DRUGS (8)
  1. REMICADE [Suspect]
     Route: 042
  2. REMICADE [Suspect]
     Indication: CROHN'S DISEASE
     Route: 042
  3. PENTASA [Suspect]
     Indication: DRUG USE FOR UNKNOWN INDICATION
     Route: 048
  4. ONEALFA [Concomitant]
     Route: 048
  5. CALCIUM LACTATE [Concomitant]
     Route: 048
  6. PARIET [Concomitant]
     Route: 048
  7. PREDONINE [Concomitant]
  8. TRANCOLON [Concomitant]

REACTIONS (4)
  - ABDOMINAL PAIN UPPER [None]
  - ARTHRITIS [None]
  - DRUG INEFFECTIVE [None]
  - PYREXIA [None]
